FAERS Safety Report 9287095 (Version 1)
Quarter: 2013Q2

REPORT INFORMATION
  Report Type: Spontaneous
  Country: US (occurrence: US)
  Receive Date: 20130513
  Receipt Date: 20130513
  Transmission Date: 20140414
  Serious: No
  Sender: FDA-Public Use
  Company Number: US-ASTRAZENECA-2013SE30777

PATIENT
  Age: 71 Year
  Sex: Female
  Weight: 63.5 kg

DRUGS (9)
  1. NEXIUM [Suspect]
     Indication: GASTROOESOPHAGEAL REFLUX DISEASE
     Route: 048
  2. METOPROLOL [Suspect]
     Indication: BLOOD PRESSURE
  3. PANTOPRAZOLE [Suspect]
  4. EFFIENT [Concomitant]
  5. MELOXICAM [Concomitant]
  6. LEVOTHYROXINE [Concomitant]
  7. ISOSORBIDE MONONITRATE [Concomitant]
  8. ZETIA [Concomitant]
  9. VENLAFLAXINE CR [Concomitant]

REACTIONS (3)
  - Barrett^s oesophagus [Unknown]
  - Dry eye [Unknown]
  - Dry mouth [Unknown]
